FAERS Safety Report 10356818 (Version 4)
Quarter: 2016Q1

REPORT INFORMATION
  Report Type: Report from Study
  Country: JP (occurrence: JP)
  Receive Date: 20140801
  Receipt Date: 20160128
  Transmission Date: 20160525
  Serious: Yes (Hospitalization, Other)
  Sender: FDA-Public Use
  Company Number: PHHY2014JP092458

PATIENT
  Age: 44 Year
  Sex: Male
  Weight: 50 kg

DRUGS (20)
  1. NEORAL [Suspect]
     Active Substance: CYCLOSPORINE
     Dosage: 300 MG, QD
     Route: 048
     Dates: start: 20100930, end: 20110601
  2. CERTICAN [Suspect]
     Active Substance: EVEROLIMUS
     Dosage: 2 MG, QD
     Route: 048
     Dates: start: 20100512, end: 20100516
  3. NEORAL [Suspect]
     Active Substance: CYCLOSPORINE
     Dosage: 250 MG, UNK
     Route: 048
     Dates: start: 20120322, end: 20150122
  4. NEORAL [Suspect]
     Active Substance: CYCLOSPORINE
     Dosage: 220 MG, QD
     Route: 048
     Dates: start: 20150123
  5. CERTICAN [Suspect]
     Active Substance: EVEROLIMUS
     Indication: HEART TRANSPLANT
     Dosage: 1.5 MG, QD
     Route: 048
     Dates: start: 20100428, end: 20100430
  6. CERTICAN [Suspect]
     Active Substance: EVEROLIMUS
     Dosage: 2.5 MG, QD
     Route: 048
     Dates: start: 20100517, end: 20100713
  7. MEVALOTIN [Concomitant]
     Active Substance: PRAVASTATIN SODIUM
     Indication: HYPERLIPIDAEMIA
     Dosage: 10 MG, UNK
     Route: 048
     Dates: end: 20081029
  8. CERTICAN [Suspect]
     Active Substance: EVEROLIMUS
     Dosage: 2.5 MG, QD
     Route: 048
     Dates: start: 20100501, end: 20100511
  9. CERTICAN [Suspect]
     Active Substance: EVEROLIMUS
     Dosage: 2.75 MG, QD
     Route: 048
     Dates: start: 20100714
  10. NEORAL [Suspect]
     Active Substance: CYCLOSPORINE
     Indication: HEART TRANSPLANT
     Dosage: 450 MG, QD
     Route: 048
     Dates: start: 20091224, end: 20100429
  11. NEORAL [Suspect]
     Active Substance: CYCLOSPORINE
     Dosage: 325 MG, QD
     Route: 048
     Dates: start: 20100524
  12. NEORAL [Suspect]
     Active Substance: CYCLOSPORINE
     Dosage: 250 MG, QD
     Route: 048
     Dates: start: 20110602, end: 20110831
  13. CELLCEPT [Concomitant]
     Active Substance: MYCOPHENOLATE MOFETIL\MYCOPHENOLATE MOFETIL HYDROCHLORIDE
     Indication: HEART TRANSPLANT
     Dosage: 250 MG, UNK
     Route: 048
     Dates: start: 20100428, end: 20100506
  14. LIPITOR [Concomitant]
     Active Substance: ATORVASTATIN CALCIUM
     Indication: HYPERLIPIDAEMIA
     Dosage: 5 MG, UNK
     Route: 048
     Dates: start: 20111014
  15. MEVALOTIN [Concomitant]
     Active Substance: PRAVASTATIN SODIUM
     Dosage: 20 MG, UNK
     Route: 048
     Dates: start: 20081030, end: 20111013
  16. CERTICAN [Suspect]
     Active Substance: EVEROLIMUS
     Dosage: 2.5 MG, QD
     Route: 048
     Dates: start: 20100930
  17. NEORAL [Suspect]
     Active Substance: CYCLOSPORINE
     Dosage: 400 MG, QD
     Route: 048
     Dates: start: 20100430, end: 20100523
  18. NEORAL [Suspect]
     Active Substance: CYCLOSPORINE
     Dosage: 275 MG, UNK
     Route: 048
     Dates: start: 20110901, end: 20120321
  19. PREDONINE [Suspect]
     Active Substance: PREDNISOLONE\PREDNISOLONE ACETATE\PREDNISOLONE SODIUM SUCCINATE
     Indication: PRODUCT USED FOR UNKNOWN INDICATION
     Dosage: UNK
     Route: 065
  20. BASEN//VOGLIBOSE [Concomitant]
     Active Substance: VOGLIBOSE
     Indication: DIABETES MELLITUS
     Dosage: 0.6 MG, UNK
     Route: 048
     Dates: start: 20080410, end: 20120322

REACTIONS (14)
  - Lip oedema [Recovered/Resolved]
  - Gamma-glutamyltransferase increased [Unknown]
  - Lip oedema [Recovered/Resolved]
  - Haematocrit decreased [Unknown]
  - Lip oedema [Recovered/Resolved]
  - Eosinophil count increased [Unknown]
  - Blood cholesterol increased [Unknown]
  - Monocyte count increased [Unknown]
  - Glycosylated haemoglobin increased [Unknown]
  - Glucose urine present [Unknown]
  - Blood alkaline phosphatase increased [Unknown]
  - Hypertension [Recovering/Resolving]
  - C-reactive protein increased [Unknown]
  - Lymphocyte count decreased [Unknown]

NARRATIVE: CASE EVENT DATE: 20100510
